FAERS Safety Report 24230392 (Version 2)
Quarter: 2024Q3

REPORT INFORMATION
  Report Type: Spontaneous
  Country: IT (occurrence: IT)
  Receive Date: 20240821
  Receipt Date: 20240930
  Transmission Date: 20241016
  Serious: Yes (Hospitalization)
  Sender: Haleon PLC
  Company Number: IT-MINISAL02-999010

PATIENT
  Age: 66 Year
  Sex: Female

DRUGS (5)
  1. VOLTAREN [Suspect]
     Active Substance: DICLOFENAC SODIUM
     Indication: Cervicobrachial syndrome
     Dosage: 100 MG, Q12H (100MG TWICE A DAY); ORAL USE
     Route: 048
     Dates: start: 20240420, end: 20240423
  2. ACETAMINOPHEN\CODEINE PHOSPHATE [Suspect]
     Active Substance: ACETAMINOPHEN\CODEINE PHOSPHATE
     Indication: Cervicobrachial syndrome
     Dosage: 2 CP DAY
     Route: 048
     Dates: start: 20240420, end: 20240423
  3. THIOCOLCHICOSIDE [Suspect]
     Active Substance: THIOCOLCHICOSIDE
     Indication: Muscle relaxant therapy
     Dosage: 4 MG, Q24H (4 MG DAILY); ORAL USE
     Route: 048
     Dates: start: 20240420, end: 20240423
  4. ENALAPRIL MALEATE\LERCANIDIPINE HYDROCHLORIDE [Concomitant]
     Active Substance: ENALAPRIL MALEATE\LERCANIDIPINE HYDROCHLORIDE
     Indication: Hypertension
     Dosage: 20/25 MG DAILY
     Route: 048
  5. LERCANIDIPINE HYDROCHLORIDE [Concomitant]
     Active Substance: LERCANIDIPINE HYDROCHLORIDE
     Indication: Hypertension
     Dosage: 20 MG DAILY
     Route: 048

REACTIONS (3)
  - Drug abuse [Recovering/Resolving]
  - Hypertension [Recovering/Resolving]
  - Abdominal pain upper [Recovering/Resolving]

NARRATIVE: CASE EVENT DATE: 20240423
